FAERS Safety Report 5685394-1 (Version None)
Quarter: 2008Q1

REPORT INFORMATION
  Report Type: 
  Country: None (occurrence: None)
  Receive Date: 20080328
  Receipt Date: 20080317
  Transmission Date: 20080703
  Serious: Yes (Other)
  Sender: FDA-Public Use
  Company Number: US-PFIZER INC-2008025424

PATIENT
  Sex: Male
  Weight: 72.6 kg

DRUGS (8)
  1. CHANTIX [Suspect]
     Indication: SMOKING CESSATION THERAPY
     Route: 048
  2. SERTRALINE [Suspect]
     Indication: DEPRESSION
     Route: 048
  3. SERTRALINE [Suspect]
     Indication: OBSESSIVE-COMPULSIVE DISORDER
  4. GABAPENTIN [Concomitant]
  5. BUSPIRONE HCL [Concomitant]
  6. OMEPRAZOLE [Concomitant]
  7. SINGULAIR [Concomitant]
  8. ALBUTEROL [Concomitant]

REACTIONS (13)
  - DECREASED APPETITE [None]
  - DEPRESSION [None]
  - DRUG INEFFECTIVE [None]
  - FATIGUE [None]
  - FEELING ABNORMAL [None]
  - HEART RATE INCREASED [None]
  - HYPERTENSION [None]
  - INSOMNIA [None]
  - NAUSEA [None]
  - NERVOUSNESS [None]
  - NIGHTMARE [None]
  - SOMNOLENCE [None]
  - WRONG TECHNIQUE IN DRUG USAGE PROCESS [None]
